FAERS Safety Report 17179596 (Version 2)
Quarter: 2020Q2

REPORT INFORMATION
  Report Type: Spontaneous
  Country: BR (occurrence: BR)
  Receive Date: 20191219
  Receipt Date: 20200410
  Transmission Date: 20200713
  Serious: Yes (Other)
  Sender: FDA-Public Use
  Company Number: BR-GLAXOSMITHKLINE-BR2019AMR153843

PATIENT
  Sex: Female
  Weight: 60 kg

DRUGS (1)
  1. BENLYSTA [Suspect]
     Active Substance: BELIMUMAB
     Indication: SYSTEMIC LUPUS ERYTHEMATOSUS
     Dosage: UNK
     Route: 042
     Dates: start: 20190404

REACTIONS (5)
  - Oropharyngeal pain [Unknown]
  - Pyrexia [Recovered/Resolved]
  - Product use issue [Recovered/Resolved]
  - Immunosuppression [Recovered/Resolved]
  - Influenza [Recovered/Resolved]
